FAERS Safety Report 10439566 (Version 1)
Quarter: 2014Q3

REPORT INFORMATION
  Report Type: Spontaneous
  Country: US (occurrence: US)
  Receive Date: 20140908
  Receipt Date: 20140908
  Transmission Date: 20150326
  Serious: No
  Sender: FDA-Public Use
  Company Number: US-BRISTOL-MYERS SQUIBB COMPANY-19977370

PATIENT
  Sex: Female

DRUGS (2)
  1. ABILIFY [Suspect]
     Active Substance: ARIPIPRAZOLE
     Indication: SCHIZOAFFECTIVE DISORDER
     Dosage: ABILIFY 5 MG AND WORKED UP TO 20 MG DAILY
  2. PROLIXIN [Suspect]
     Active Substance: FLUPHENAZINE HYDROCHLORIDE

REACTIONS (4)
  - Constipation [Unknown]
  - Weight increased [Unknown]
  - Abdominal distension [Unknown]
  - Restless legs syndrome [Unknown]
